FAERS Safety Report 8563791-4 (Version None)
Quarter: 2012Q3

REPORT INFORMATION
  Report Type: 
  Country: None (occurrence: None)
  Receive Date: 20120803
  Receipt Date: 20120723
  Transmission Date: 20120928
  Serious: Yes (Other)
  Sender: FDA-Public Use
  Company Number: US-009507513-1207USA010754

PATIENT

DRUGS (13)
  1. VITAMIN E [Concomitant]
  2. SPIRIVA [Concomitant]
  3. ALBUTEROL [Concomitant]
  4. ZOCOR [Suspect]
     Dosage: 10 MG, UNK
     Route: 048
  5. DALIRESP [Suspect]
     Dosage: 500 MICROGRAM, UNK
  6. MULTI-VITAMINS [Concomitant]
  7. ASCORBIC ACID [Concomitant]
  8. ASPIRIN [Concomitant]
  9. VITAMIN D (UNSPECIFIED) [Concomitant]
  10. ASMANEX TWISTHALER [Concomitant]
     Dosage: 220 MICROGRAM, UNK
     Route: 055
  11. FORADIL [Concomitant]
  12. ALLOPURINOL [Concomitant]
     Dosage: 300 MG, UNK
  13. LEVAQUIN [Suspect]

REACTIONS (15)
  - DYSGEUSIA [None]
  - ASTHENIA [None]
  - GASTROOESOPHAGEAL REFLUX DISEASE [None]
  - DECREASED APPETITE [None]
  - BRONCHITIS [None]
  - ERUCTATION [None]
  - TREMOR [None]
  - OEDEMA PERIPHERAL [None]
  - FREQUENT BOWEL MOVEMENTS [None]
  - NAUSEA [None]
  - SWELLING FACE [None]
  - DRY MOUTH [None]
  - WEIGHT DECREASED [None]
  - MUSCULAR WEAKNESS [None]
  - AGEUSIA [None]
